FAERS Safety Report 5194783-3 (Version None)
Quarter: 2006Q4

REPORT INFORMATION
  Report Type: 
  Country: None (occurrence: None)
  Receive Date: 20061229
  Receipt Date: 20061220
  Transmission Date: 20070319
  Serious: Yes (Hospitalization)
  Sender: FDA-Public Use
  Company Number: ZA-AVENTIS-200622844GDDC

PATIENT
  Age: 45 Year
  Sex: Female

DRUGS (6)
  1. TAXOTERE [Suspect]
     Indication: BREAST CANCER
     Route: 042
     Dates: start: 20061003, end: 20061003
  2. PHENERGAN [Concomitant]
     Route: 048
     Dates: start: 20061002, end: 20061003
  3. MEDROL [Concomitant]
     Route: 048
     Dates: start: 20061002, end: 20061003
  4. MEDROL [Concomitant]
     Route: 048
     Dates: start: 20061003, end: 20061005
  5. CELESTONE                          /00008501/ [Concomitant]
     Route: 042
     Dates: start: 20061003, end: 20061003
  6. KYTRIL                             /01178101/ [Concomitant]
     Route: 042
     Dates: start: 20061003, end: 20061003

REACTIONS (1)
  - DIABETIC KETOACIDOTIC HYPERGLYCAEMIC COMA [None]
